FAERS Safety Report 4698302-7 (Version None)
Quarter: 2005Q2

REPORT INFORMATION
  Report Type: 
  Country: None (occurrence: None)
  Receive Date: 20050621
  Receipt Date: 20050608
  Transmission Date: 20051028
  Serious: Yes (Hospitalization)
  Sender: FDA-Public Use
  Company Number: 087-20785-05060238

PATIENT
  Age: 65 Year
  Sex: Female

DRUGS (1)
  1. THALIDOMIDE (THALIDOMIDE) [Suspect]
     Indication: MULTIPLE MYELOMA
     Dosage: INITIAL DOSE OF 100 MG, INCREASED 100MG EVERY 3 DAYS TO 300MG, QD

REACTIONS (7)
  - BRONCHOALVEOLAR LAVAGE ABNORMAL [None]
  - CREPITATIONS [None]
  - DYSPNOEA [None]
  - HAEMOGLOBIN DECREASED [None]
  - HYPOXIA [None]
  - PNEUMONITIS [None]
  - PYREXIA [None]
